FAERS Safety Report 23867591 (Version 1)
Quarter: 2024Q2

REPORT INFORMATION
  Report Type: Spontaneous
  Country: US (occurrence: US)
  Receive Date: 20240517
  Receipt Date: 20240517
  Transmission Date: 20240715
  Serious: No
  Sender: FDA-Public Use
  Company Number: US-JNJFOC-20240545322

PATIENT
  Age: 84 Year
  Sex: Male

DRUGS (1)
  1. AKEEGA [Suspect]
     Active Substance: ABIRATERONE ACETATE\NIRAPARIB TOSYLATE MONOHYDRATE
     Indication: Product used for unknown indication
     Dosage: 100MG/500MG - 2 TABS ONCE DAILY
     Route: 048
     Dates: start: 20240422

REACTIONS (2)
  - Dyspepsia [Not Recovered/Not Resolved]
  - Nausea [Not Recovered/Not Resolved]
